FAERS Safety Report 7058277-2 (Version None)
Quarter: 2010Q4

REPORT INFORMATION
  Report Type: 
  Country: None (occurrence: None)
  Receive Date: 20101022
  Receipt Date: 20101012
  Transmission Date: 20110411
  Serious: Yes (Other)
  Sender: FDA-Public Use
  Company Number: US-PFIZER INC-2010130164

PATIENT
  Sex: Male
  Weight: 132 kg

DRUGS (11)
  1. CHANTIX [Suspect]
     Indication: SMOKING CESSATION THERAPY
     Dosage: 1 MG, 2X/DAY
     Route: 048
     Dates: start: 20090701
  2. CHANTIX [Suspect]
     Dosage: 0.5 MG, 2X/DAY
     Route: 048
     Dates: start: 20101001
  3. METHADONE [Concomitant]
     Indication: PAIN
     Dosage: 800 MG, UNK
  4. HYDROCHLOROTHIAZIDE [Concomitant]
     Dosage: UNK
  5. LISINOPRIL [Concomitant]
     Indication: HYPERTENSION
     Dosage: UNK
  6. METOPROLOL [Concomitant]
     Indication: HYPERTENSION
     Dosage: UNK
  7. FLEXERIL [Concomitant]
     Indication: MUSCLE RELAXANT THERAPY
     Dosage: UNK
  8. IBUPROFEN [Concomitant]
     Indication: PAIN
     Dosage: 400MG TO 800MG, AS NEEDED
  9. OXYCODONE [Concomitant]
     Indication: PAIN
     Dosage: 600 MG, 6X/DAY
     Route: 048
  10. AMBIEN [Concomitant]
     Indication: SLEEP DISORDER
     Dosage: UNK, OCCASIONALLY
  11. DIAZEPAM [Concomitant]

REACTIONS (6)
  - ABNORMAL DREAMS [None]
  - ANXIETY [None]
  - MANIA [None]
  - NIGHTMARE [None]
  - PAIN [None]
  - WEIGHT DECREASED [None]
